FAERS Safety Report 12178966 (Version 2)
Quarter: 2016Q3

REPORT INFORMATION
  Report Type: Report from Study
  Country: CA (occurrence: CA)
  Receive Date: 20160315
  Receipt Date: 20160912
  Transmission Date: 20161109
  Serious: Yes (Other)
  Sender: FDA-Public Use
  Company Number: PHHY2016CA023191

PATIENT
  Age: 59 Year
  Sex: Female

DRUGS (1)
  1. COSENTYX [Suspect]
     Active Substance: SECUKINUMAB
     Dosage: 300 MG, QMO
     Route: 058
     Dates: start: 20151026

REACTIONS (12)
  - Sleep apnoea syndrome [Unknown]
  - Psoriasis [Unknown]
  - Stress [Unknown]
  - Pulmonary hypertension [Unknown]
  - Peripheral nerve lesion [Unknown]
  - Gait disturbance [Unknown]
  - Pruritus [Unknown]
  - Nasal congestion [Unknown]
  - Dyspnoea [Unknown]
  - Discomfort [Unknown]
  - Nasopharyngitis [Unknown]
  - Therapeutic response decreased [Unknown]

NARRATIVE: CASE EVENT DATE: 201602
